FAERS Safety Report 4384654-4 (Version None)
Quarter: 2004Q2

REPORT INFORMATION
  Report Type: 
  Country: None (occurrence: None)
  Receive Date: 20040621
  Receipt Date: 20040610
  Transmission Date: 20050107
  Serious: Yes (Other)
  Sender: FDA-Public Use
  Company Number: 207099

PATIENT
  Age: 74 Year
  Sex: Female

DRUGS (3)
  1. RITUXAN [Suspect]
     Indication: LYMPHOMA
     Dosage: 480 MG, 1/WEEK, INTRAVENOUS
     Route: 042
     Dates: start: 20040403
  2. DEXCHLORPHENIRAMINE MALEATE (DEXCHLORPHENIRAMINE MALEATE) [Concomitant]
  3. IBUPROFEN [Concomitant]

REACTIONS (3)
  - ANAPHYLACTOID REACTION [None]
  - INFUSION RELATED REACTION [None]
  - PHARYNGOLARYNGEAL PAIN [None]
